FAERS Safety Report 25719555 (Version 1)
Quarter: 2025Q3

REPORT INFORMATION
  Report Type: Spontaneous
  Country: CN (occurrence: CN)
  Receive Date: 20250825
  Receipt Date: 20250825
  Transmission Date: 20251020
  Serious: Yes (Hospitalization, Other)
  Sender: BAXTER
  Company Number: None

PATIENT
  Age: 59 Year
  Sex: Female
  Weight: 60 kg

DRUGS (10)
  1. CYCLOPHOSPHAMIDE [Suspect]
     Active Substance: CYCLOPHOSPHAMIDE
     Indication: Diffuse large B-cell lymphoma
     Dosage: 825 MG, QD
     Route: 041
     Dates: start: 20250716, end: 20250716
  2. RITUXIMAB [Suspect]
     Active Substance: RITUXIMAB
     Indication: Diffuse large B-cell lymphoma
     Dosage: 500 MG, QD
     Route: 041
     Dates: start: 20250715, end: 20250715
  3. RITUXIMAB [Suspect]
     Active Substance: RITUXIMAB
     Dosage: 100 MG, QD
     Route: 041
     Dates: start: 20250715, end: 20250715
  4. EPIRUBICIN HYDROCHLORIDE [Suspect]
     Active Substance: EPIRUBICIN HYDROCHLORIDE
     Indication: Diffuse large B-cell lymphoma
     Dosage: 90 MG, QD
     Route: 041
     Dates: start: 20250716, end: 20250716
  5. POLATUZUMAB VEDOTIN [Suspect]
     Active Substance: POLATUZUMAB VEDOTIN
     Indication: Diffuse large B-cell lymphoma
     Dosage: 120 MG, QD, D4
     Route: 065
     Dates: start: 202507
  6. METHYLPREDNISOLONE [Suspect]
     Active Substance: METHYLPREDNISOLONE
     Indication: Diffuse large B-cell lymphoma
     Dosage: 80 MG, QD D1-5
     Route: 065
     Dates: start: 202507
  7. SELINEXOR [Suspect]
     Active Substance: SELINEXOR
     Indication: Diffuse large B-cell lymphoma
     Dosage: 40 MG, QD
     Route: 065
     Dates: start: 202507
  8. MEROPENEM [Suspect]
     Active Substance: MEROPENEM
     Indication: Anti-infective therapy
     Dosage: 1 G, TID (Q8H)
     Route: 041
     Dates: start: 20250723, end: 20250806
  9. TIGECYCLINE [Suspect]
     Active Substance: TIGECYCLINE
     Indication: Anti-infective therapy
     Dosage: 50 MG, QD
     Route: 041
     Dates: start: 20250729, end: 20250805
  10. CASPOFUNGIN ACETATE [Suspect]
     Active Substance: CASPOFUNGIN ACETATE
     Indication: Anti-infective therapy
     Dosage: 50 MG, QD
     Route: 041
     Dates: start: 20250725, end: 20250804

REACTIONS (9)
  - Troponin increased [Recovered/Resolved]
  - Myelosuppression [Recovered/Resolved]
  - Granulocyte count decreased [Recovering/Resolving]
  - Platelet count decreased [Recovering/Resolving]
  - Cardiotoxicity [Unknown]
  - Myocardial injury [Recovering/Resolving]
  - Infection [Recovering/Resolving]
  - Procalcitonin increased [Unknown]
  - C-reactive protein increased [Recovering/Resolving]

NARRATIVE: CASE EVENT DATE: 20250728
